FAERS Safety Report 5929945-8 (Version None)
Quarter: 2008Q4

REPORT INFORMATION
  Report Type: 
  Country: None (occurrence: None)
  Receive Date: 20081024
  Receipt Date: 20081013
  Transmission Date: 20090506
  Serious: Yes (Other)
  Sender: FDA-Public Use
  Company Number: GB-PFIZER INC-2008057374

PATIENT
  Sex: Male

DRUGS (3)
  1. VIAGRA [Suspect]
     Indication: ERECTILE DYSFUNCTION
     Route: 048
     Dates: start: 20040607, end: 20080707
  2. DIAZEPAM [Concomitant]
     Route: 048
     Dates: start: 20040607
  3. TRAMADOL HCL [Concomitant]
     Dates: start: 20061120

REACTIONS (3)
  - METASTATIC SQUAMOUS CELL CARCINOMA [None]
  - VISION BLURRED [None]
  - VISUAL IMPAIRMENT [None]
